FAERS Safety Report 22794052 (Version 2)
Quarter: 2023Q4

REPORT INFORMATION
  Report Type: Report from Study
  Country: US (occurrence: US)
  Receive Date: 20230807
  Receipt Date: 20231102
  Transmission Date: 20240110
  Serious: Yes (Other)
  Sender: FDA-Public Use
  Company Number: US-ABBVIE-5355653

PATIENT
  Sex: Male

DRUGS (1)
  1. IMBRUVICA [Suspect]
     Active Substance: IBRUTINIB
     Indication: Chronic lymphocytic leukaemia
     Route: 048
     Dates: start: 20210101

REACTIONS (4)
  - Carpal tunnel syndrome [Recovering/Resolving]
  - Artificial crown procedure [Recovering/Resolving]
  - Procedural pain [Recovering/Resolving]
  - Post procedural infection [Unknown]

NARRATIVE: CASE EVENT DATE: 20230101
